FAERS Safety Report 11595467 (Version 2)
Quarter: 2015Q4

REPORT INFORMATION
  Report Type: Spontaneous
  Country: US (occurrence: US)
  Receive Date: 20151002
  Receipt Date: 20151113
  Transmission Date: 20160304
  Serious: Yes (Other)
  Sender: FDA-Public Use
  Company Number: 09212015-BJ-A

PATIENT
  Age: 46 Year
  Sex: Male
  Weight: 84.09 kg

DRUGS (1)
  1. HURRICAINE TOPICAL ANESTHETIC [Suspect]
     Active Substance: BENZOCAINE
     Indication: APPLICATION SITE HYPOAESTHESIA
     Route: 061
     Dates: start: 20150907, end: 20150907

REACTIONS (1)
  - Application site hypoaesthesia [Unknown]

NARRATIVE: CASE EVENT DATE: 20150907
